FAERS Safety Report 15717233 (Version 3)
Quarter: 2021Q4

REPORT INFORMATION
  Report Type: Report from Study
  Country: FR (occurrence: FR)
  Receive Date: 20181213
  Receipt Date: 20211221
  Transmission Date: 20220303
  Serious: Yes (Hospitalization, Other)
  Sender: FDA-Public Use
  Company Number: PHHY2018FR179631

PATIENT
  Age: 55 Year
  Sex: Male
  Weight: 53 kg

DRUGS (4)
  1. MEKINIST [Suspect]
     Active Substance: TRAMETINIB DIMETHYL SULFOXIDE
     Indication: Lung adenocarcinoma stage IV
     Dosage: 2 MG, QD
     Route: 048
     Dates: start: 20180801, end: 20181105
  2. MEKINIST [Suspect]
     Active Substance: TRAMETINIB DIMETHYL SULFOXIDE
     Dosage: 1 MG, QD
     Route: 048
     Dates: start: 20181205
  3. DABRAFENIB [Suspect]
     Active Substance: DABRAFENIB
     Indication: Lung adenocarcinoma stage IV
     Dosage: 150 MG, BID
     Route: 065
     Dates: start: 20180801
  4. OXYCODONE [Concomitant]
     Active Substance: OXYCODONE
     Indication: Product used for unknown indication
     Dosage: 20 MG, BID
     Route: 065

REACTIONS (8)
  - Left ventricular dysfunction [Recovering/Resolving]
  - Ventricular hypokinesia [Recovering/Resolving]
  - Ejection fraction decreased [Recovering/Resolving]
  - Lung adenocarcinoma stage IV [Unknown]
  - Malignant neoplasm progression [Unknown]
  - Blood alkaline phosphatase increased [Unknown]
  - Normochromic normocytic anaemia [Unknown]
  - Gamma-glutamyltransferase increased [Unknown]

NARRATIVE: CASE EVENT DATE: 20181103
